FAERS Safety Report 9032444 (Version 1)
Quarter: 2013Q1

REPORT INFORMATION
  Report Type: Spontaneous
  Country: US (occurrence: US)
  Receive Date: 20130125
  Receipt Date: 20130125
  Transmission Date: 20140127
  Serious: Yes (Hospitalization)
  Sender: FDA-Public Use
  Company Number: US-GLAXOSMITHKLINE-A1008719A

PATIENT
  Age: 30 Year
  Sex: Female

DRUGS (2)
  1. LAMICTAL [Suspect]
     Indication: BIPOLAR DISORDER
     Dosage: 150MG TWICE PER DAY
     Route: 048
  2. ANTIDEPRESSANT [Concomitant]

REACTIONS (14)
  - Lymphoma [Not Recovered/Not Resolved]
  - Mental impairment [Unknown]
  - Headache [Unknown]
  - Pyrexia [Unknown]
  - Joint swelling [Unknown]
  - Lymphadenopathy [Unknown]
  - Weight decreased [Unknown]
  - Night sweats [Unknown]
  - Anaemia [Unknown]
  - Hepatomegaly [Unknown]
  - Feeling abnormal [Unknown]
  - Bradyphrenia [Unknown]
  - Swelling [Unknown]
  - Off label use [Unknown]
